FAERS Safety Report 17978135 (Version 1)
Quarter: 2020Q3

REPORT INFORMATION
  Report Type: Report from Study
  Country: JP (occurrence: JP)
  Receive Date: 20200703
  Receipt Date: 20200703
  Transmission Date: 20201103
  Serious: Yes (Hospitalization)
  Sender: FDA-Public Use
  Company Number: JP-ACCORD-187754

PATIENT
  Age: 80 Year
  Sex: Female

DRUGS (3)
  1. MITOMYCIN. [Suspect]
     Active Substance: MITOMYCIN
     Indication: PRODUCT USED FOR UNKNOWN INDICATION
     Dosage: STRENGTH: 0.04% SPONGE WAS SOAKED AND APPLIED TO THE ADJACENT
  2. XYLOCAINE ASTRAZENECA [Concomitant]
     Indication: LOCAL ANAESTHESIA
     Dosage: 4%
     Route: 061
  3. DEXAMETHASONE. [Concomitant]
     Active Substance: DEXAMETHASONE
     Dosage: STRENGTH: 0.1%, FOUR TO EIGHT TIMES DAILY

REACTIONS (1)
  - Corneal disorder [Unknown]
